FAERS Safety Report 8352501-1 (Version None)
Quarter: 2012Q2

REPORT INFORMATION
  Report Type: 
  Country: None (occurrence: None)
  Receive Date: 20120511
  Receipt Date: 20120507
  Transmission Date: 20120825
  Serious: Yes (Other)
  Sender: FDA-Public Use
  Company Number: PHHY2012BR039182

PATIENT
  Sex: Female
  Weight: 69 kg

DRUGS (7)
  1. TAPAZOL [Concomitant]
     Indication: THYROID DISORDER
     Dosage: 10 MG, QD
     Route: 048
     Dates: start: 20100101
  2. MEMANTINE HCL [Concomitant]
     Indication: NERVOUS SYSTEM DISORDER
     Dosage: 10 MG, BID, ONE TABLET AT MORNING AND ONE AFTER DINNER
     Route: 048
     Dates: start: 20090101
  3. DIGEPLUS [Concomitant]
     Indication: DYSPEPSIA
     Dosage: 2 DF, QD
     Route: 048
     Dates: start: 19970101
  4. ATACAND [Concomitant]
     Indication: HYPERTENSION
     Dosage: 32 MG, QD
     Route: 048
     Dates: start: 20050101
  5. PRIMIDONE [Concomitant]
     Indication: NERVOUS SYSTEM DISORDER
     Dosage: 100 MG, QD
     Route: 048
     Dates: start: 20100101
  6. EXELON [Suspect]
     Indication: DEMENTIA ALZHEIMER'S TYPE
     Dosage: 9.5 MG, QD
     Route: 062
     Dates: start: 20100101
  7. PANTOPRAZOLE [Concomitant]
     Dosage: 40 MG, BID, ONE TAB AT MORNING AND ONE AT NIGHT
     Route: 048

REACTIONS (6)
  - FEMUR FRACTURE [None]
  - ABASIA [None]
  - MALAISE [None]
  - PAIN IN EXTREMITY [None]
  - HYPERTENSION [None]
  - BACK PAIN [None]
